FAERS Safety Report 26113679 (Version 1)
Quarter: 2025Q4

REPORT INFORMATION
  Report Type: Spontaneous
  Country: EU (occurrence: EU)
  Receive Date: 20251202
  Receipt Date: 20251202
  Transmission Date: 20260117
  Serious: Yes (Hospitalization, Other)
  Sender: MYLAN
  Company Number: EU-HIKMA PHARMACEUTICALS USA INC.-FR-H14001-25-12012

PATIENT
  Age: 63 Year
  Sex: Female

DRUGS (40)
  1. ETOPOSIDE [Suspect]
     Active Substance: ETOPOSIDE
     Indication: Diffuse large B-cell lymphoma
     Dosage: UNK, CYCLE (4 CYCLES OF R-HOLOXAN)
     Dates: start: 20210615, end: 20210810
  2. ETOPOSIDE [Suspect]
     Active Substance: ETOPOSIDE
     Dosage: UNK, CYCLE (4 CYCLES OF R-HOLOXAN)
     Route: 042
     Dates: start: 20210615, end: 20210810
  3. ETOPOSIDE [Suspect]
     Active Substance: ETOPOSIDE
     Dosage: UNK, CYCLE (4 CYCLES OF R-HOLOXAN)
     Route: 042
     Dates: start: 20210615, end: 20210810
  4. ETOPOSIDE [Suspect]
     Active Substance: ETOPOSIDE
     Dosage: UNK, CYCLE (4 CYCLES OF R-HOLOXAN)
     Dates: start: 20210615, end: 20210810
  5. PREDNISONE [Suspect]
     Active Substance: PREDNISONE
     Indication: Diffuse large B-cell lymphoma
     Dosage: UNK, CYCLE (1 CYCLE OF CHOP, 4 CYCLES OF R-ACVBP)
     Dates: start: 20210219, end: 20210429
  6. PREDNISONE [Suspect]
     Active Substance: PREDNISONE
     Dosage: UNK, CYCLE (1 CYCLE OF CHOP, 4 CYCLES OF R-ACVBP)
     Route: 065
     Dates: start: 20210219, end: 20210429
  7. PREDNISONE [Suspect]
     Active Substance: PREDNISONE
     Dosage: UNK, CYCLE (1 CYCLE OF CHOP, 4 CYCLES OF R-ACVBP)
     Route: 065
     Dates: start: 20210219, end: 20210429
  8. PREDNISONE [Suspect]
     Active Substance: PREDNISONE
     Dosage: UNK, CYCLE (1 CYCLE OF CHOP, 4 CYCLES OF R-ACVBP)
     Dates: start: 20210219, end: 20210429
  9. METHOTREXATE [Suspect]
     Active Substance: METHOTREXATE
     Indication: Diffuse large B-cell lymphoma
     Dosage: UNK (2 ADMINISTRATIONS)
     Dates: start: 20210517, end: 20210531
  10. METHOTREXATE [Suspect]
     Active Substance: METHOTREXATE
     Dosage: UNK (2 ADMINISTRATIONS)
     Route: 065
     Dates: start: 20210517, end: 20210531
  11. METHOTREXATE [Suspect]
     Active Substance: METHOTREXATE
     Dosage: UNK (2 ADMINISTRATIONS)
     Route: 065
     Dates: start: 20210517, end: 20210531
  12. METHOTREXATE [Suspect]
     Active Substance: METHOTREXATE
     Dosage: UNK (2 ADMINISTRATIONS)
     Dates: start: 20210517, end: 20210531
  13. BLEOMYCIN [Suspect]
     Active Substance: BLEOMYCIN SULFATE
     Indication: Diffuse large B-cell lymphoma
     Dosage: UNK, CYCLE (4 CYCLES OF R-ACVBP)
     Dates: start: 20210219, end: 20210429
  14. BLEOMYCIN [Suspect]
     Active Substance: BLEOMYCIN SULFATE
     Dosage: UNK, CYCLE (4 CYCLES OF R-ACVBP)
     Route: 065
     Dates: start: 20210219, end: 20210429
  15. BLEOMYCIN [Suspect]
     Active Substance: BLEOMYCIN SULFATE
     Dosage: UNK, CYCLE (4 CYCLES OF R-ACVBP)
     Route: 065
     Dates: start: 20210219, end: 20210429
  16. BLEOMYCIN [Suspect]
     Active Substance: BLEOMYCIN SULFATE
     Dosage: UNK, CYCLE (4 CYCLES OF R-ACVBP)
     Dates: start: 20210219, end: 20210429
  17. DOXORUBICIN HYDROCHLORIDE [Suspect]
     Active Substance: DOXORUBICIN HYDROCHLORIDE
     Indication: Diffuse large B-cell lymphoma
     Dosage: UNK, CYCLE
     Dates: start: 20210219, end: 20210429
  18. DOXORUBICIN HYDROCHLORIDE [Suspect]
     Active Substance: DOXORUBICIN HYDROCHLORIDE
     Dosage: UNK, CYCLE
     Route: 042
     Dates: start: 20210219, end: 20210429
  19. DOXORUBICIN HYDROCHLORIDE [Suspect]
     Active Substance: DOXORUBICIN HYDROCHLORIDE
     Dosage: UNK, CYCLE
     Route: 042
     Dates: start: 20210219, end: 20210429
  20. DOXORUBICIN HYDROCHLORIDE [Suspect]
     Active Substance: DOXORUBICIN HYDROCHLORIDE
     Dosage: UNK, CYCLE
     Dates: start: 20210219, end: 20210429
  21. CYCLOPHOSPHAMIDE [Suspect]
     Active Substance: CYCLOPHOSPHAMIDE
     Indication: Diffuse large B-cell lymphoma
     Dosage: UNK, CYCLE (1 CYCLE OF CHOP, 4 CYCLES OF R-ACVBP)
     Dates: start: 20210219
  22. CYCLOPHOSPHAMIDE [Suspect]
     Active Substance: CYCLOPHOSPHAMIDE
     Dosage: UNK, CYCLE (1 CYCLE OF CHOP, 4 CYCLES OF R-ACVBP)
     Route: 065
     Dates: start: 20210219
  23. CYCLOPHOSPHAMIDE [Suspect]
     Active Substance: CYCLOPHOSPHAMIDE
     Dosage: UNK, CYCLE (1 CYCLE OF CHOP, 4 CYCLES OF R-ACVBP)
     Route: 065
     Dates: start: 20210219
  24. CYCLOPHOSPHAMIDE [Suspect]
     Active Substance: CYCLOPHOSPHAMIDE
     Dosage: UNK, CYCLE (1 CYCLE OF CHOP, 4 CYCLES OF R-ACVBP)
     Dates: start: 20210219
  25. IFOSFAMIDE [Suspect]
     Active Substance: IFOSFAMIDE
     Indication: Diffuse large B-cell lymphoma
     Dosage: UNK, CYCLE (4 CYCLES OF R-HOLOXAN)
     Dates: start: 20210615, end: 20210810
  26. IFOSFAMIDE [Suspect]
     Active Substance: IFOSFAMIDE
     Dosage: UNK, CYCLE (4 CYCLES OF R-HOLOXAN)
     Route: 042
     Dates: start: 20210615, end: 20210810
  27. IFOSFAMIDE [Suspect]
     Active Substance: IFOSFAMIDE
     Dosage: UNK, CYCLE (4 CYCLES OF R-HOLOXAN)
     Route: 042
     Dates: start: 20210615, end: 20210810
  28. IFOSFAMIDE [Suspect]
     Active Substance: IFOSFAMIDE
     Dosage: UNK, CYCLE (4 CYCLES OF R-HOLOXAN)
     Dates: start: 20210615, end: 20210810
  29. VINCRISTINE [Suspect]
     Active Substance: VINCRISTINE
     Indication: Diffuse large B-cell lymphoma
     Dosage: UNK, CYCLE  (1 CYCLE OF CHOP)
     Dates: start: 20210219
  30. VINCRISTINE [Suspect]
     Active Substance: VINCRISTINE
     Dosage: UNK, CYCLE  (1 CYCLE OF CHOP)
     Route: 065
     Dates: start: 20210219
  31. VINCRISTINE [Suspect]
     Active Substance: VINCRISTINE
     Dosage: UNK, CYCLE  (1 CYCLE OF CHOP)
     Route: 065
     Dates: start: 20210219
  32. VINCRISTINE [Suspect]
     Active Substance: VINCRISTINE
     Dosage: UNK, CYCLE  (1 CYCLE OF CHOP)
     Dates: start: 20210219
  33. RITUXIMAB [Suspect]
     Active Substance: RITUXIMAB
     Indication: Diffuse large B-cell lymphoma
     Dosage: UNK, CYCLE (4 CYCLES OF R-HOLOXAN)
     Dates: start: 20210615, end: 20210810
  34. RITUXIMAB [Suspect]
     Active Substance: RITUXIMAB
     Dosage: UNK, CYCLE (4 CYCLES OF R-HOLOXAN)
     Route: 065
     Dates: start: 20210615, end: 20210810
  35. RITUXIMAB [Suspect]
     Active Substance: RITUXIMAB
     Dosage: UNK, CYCLE (4 CYCLES OF R-HOLOXAN)
     Route: 065
     Dates: start: 20210615, end: 20210810
  36. RITUXIMAB [Suspect]
     Active Substance: RITUXIMAB
     Dosage: UNK, CYCLE (4 CYCLES OF R-HOLOXAN)
     Dates: start: 20210615, end: 20210810
  37. VINDESINE [Suspect]
     Active Substance: VINDESINE
     Indication: Diffuse large B-cell lymphoma
     Dosage: UNK, CYCLE (4 CYCLES OF R-ACVBP)
     Dates: start: 20210219, end: 20210429
  38. VINDESINE [Suspect]
     Active Substance: VINDESINE
     Dosage: UNK, CYCLE (4 CYCLES OF R-ACVBP)
     Route: 065
     Dates: start: 20210219, end: 20210429
  39. VINDESINE [Suspect]
     Active Substance: VINDESINE
     Dosage: UNK, CYCLE (4 CYCLES OF R-ACVBP)
     Route: 065
     Dates: start: 20210219, end: 20210429
  40. VINDESINE [Suspect]
     Active Substance: VINDESINE
     Dosage: UNK, CYCLE (4 CYCLES OF R-ACVBP)
     Dates: start: 20210219, end: 20210429

REACTIONS (1)
  - Dilated cardiomyopathy [Not Recovered/Not Resolved]

NARRATIVE: CASE EVENT DATE: 20250701
